FAERS Safety Report 25993837 (Version 1)
Quarter: 2025Q4

REPORT INFORMATION
  Report Type: Other
  Country: US (occurrence: US)
  Receive Date: 20251104
  Receipt Date: 20251104
  Transmission Date: 20260117
  Serious: Yes (Other)
  Sender: ALVOGEN
  Company Number: US-ALVOGEN-2025098955

PATIENT
  Age: 84 Year
  Sex: Male

DRUGS (1)
  1. LENALIDOMIDE [Suspect]
     Active Substance: LENALIDOMIDE
     Indication: Plasma cell myeloma
     Dosage: RESULTED IN A PARTIAL RESPONSE THAT LASTED APPROXIMATELY 2 YEARS

REACTIONS (3)
  - Clonal haematopoiesis [Recovering/Resolving]
  - Anaemia [Recovering/Resolving]
  - Off label use [Unknown]
